FAERS Safety Report 15652447 (Version 1)
Quarter: 2018Q4

REPORT INFORMATION
  Report Type: Spontaneous
  Country: US (occurrence: US)
  Receive Date: 20181123
  Receipt Date: 20181123
  Transmission Date: 20190205
  Serious: No
  Sender: FDA-Public Use
  Company Number: US-FOUNDATIONCONSUMERHC-2018-US-015228

PATIENT
  Age: 29 Year
  Sex: Female
  Weight: 72.58 kg

DRUGS (5)
  1. TAKE ACTION [Suspect]
     Active Substance: LEVONORGESTREL
     Indication: POST COITAL CONTRACEPTION
     Dosage: 1.5 MG
     Route: 048
     Dates: start: 20180824, end: 20180824
  2. LANTUS [Concomitant]
     Active Substance: INSULIN GLARGINE
  3. BIOTIN [Concomitant]
     Active Substance: BIOTIN
  4. HUMALOG [Concomitant]
     Active Substance: INSULIN LISPRO
  5. VITAMIN D [Concomitant]
     Active Substance: CHOLECALCIFEROL

REACTIONS (1)
  - Vaginal haemorrhage [Not Recovered/Not Resolved]

NARRATIVE: CASE EVENT DATE: 20180825
